FAERS Safety Report 5950471-4 (Version None)
Quarter: 2008Q4

REPORT INFORMATION
  Report Type: 
  Country: None (occurrence: None)
  Receive Date: 20081022
  Receipt Date: 20080519
  Transmission Date: 20090506
  Serious: No
  Sender: FDA-Public Use
  Company Number: SPV1-2008-01397

PATIENT
  Age: 6 Year
  Sex: Male
  Weight: 18.6 kg

DRUGS (2)
  1. VYVANSE [Suspect]
     Indication: ATTENTION DEFICIT/HYPERACTIVITY DISORDER
     Dosage: 50 MG, 1X/DAY:QD, ORAL
     Route: 048
     Dates: start: 20080518
  2. CLONIDINE [Concomitant]

REACTIONS (2)
  - ABDOMINAL PAIN UPPER [None]
  - VOMITING [None]
